FAERS Safety Report 10817247 (Version 1)
Quarter: 2015Q1

REPORT INFORMATION
  Report Type: Spontaneous
  Country: US (occurrence: US)
  Receive Date: 20150218
  Receipt Date: 20150218
  Transmission Date: 20150721
  Serious: No
  Sender: FDA-Public Use
  Company Number: US-ABBVIE-14K-163-1287661-00

PATIENT
  Age: 49 Year
  Sex: Female

DRUGS (3)
  1. IBUPROFEN. [Suspect]
     Active Substance: IBUPROFEN
     Indication: PRODUCT USED FOR UNKNOWN INDICATION
     Dates: start: 201409
  2. HUMIRA [Suspect]
     Active Substance: ADALIMUMAB
     Indication: RHEUMATOID ARTHRITIS
     Route: 058
  3. BENADRYL [Suspect]
     Active Substance: DIPHENHYDRAMINE HYDROCHLORIDE
     Indication: PRODUCT USED FOR UNKNOWN INDICATION
     Dates: start: 201409

REACTIONS (18)
  - Rhinorrhoea [Unknown]
  - Urticaria [Unknown]
  - Influenza like illness [Unknown]
  - Chest pain [Unknown]
  - Swelling [Unknown]
  - Back pain [Unknown]
  - Abdominal pain upper [Unknown]
  - Discomfort [Unknown]
  - Decreased appetite [Unknown]
  - Mood altered [Unknown]
  - Hypoaesthesia [Unknown]
  - Fatigue [Unknown]
  - Blister [Unknown]
  - Headache [Unknown]
  - Alopecia [Unknown]
  - Paraesthesia [Unknown]
  - Myalgia [Unknown]
  - Erythema [Unknown]

NARRATIVE: CASE EVENT DATE: 201409
